FAERS Safety Report 9027764 (Version 1)
Quarter: 2013Q1

REPORT INFORMATION
  Report Type: Spontaneous
  Country: FR (occurrence: FR)
  Receive Date: 20130123
  Receipt Date: 20130123
  Transmission Date: 20140127
  Serious: Yes (Hospitalization)
  Sender: FDA-Public Use
  Company Number: FR-SANOFI-AVENTIS-2013SA004313

PATIENT
  Age: 67 Year
  Sex: Female

DRUGS (3)
  1. DAONIL [Suspect]
     Indication: DIABETES MELLITUS
     Route: 048
     Dates: start: 20121205, end: 20121205
  2. NOVONORM [Suspect]
     Indication: DIABETES MELLITUS
     Route: 048
     Dates: start: 201211, end: 201212
  3. INSULIN DETEMIR [Suspect]
     Indication: DIABETES MELLITUS
     Route: 058
     Dates: start: 201208

REACTIONS (1)
  - Cardiac failure [Unknown]
